FAERS Safety Report 7511129-3 (Version None)
Quarter: 2011Q2

REPORT INFORMATION
  Report Type: 
  Country: None (occurrence: None)
  Receive Date: 20110531
  Receipt Date: 20110517
  Transmission Date: 20111010
  Serious: Yes (Other)
  Sender: FDA-Public Use
  Company Number: NL-JNJFOC-20110507440

PATIENT
  Sex: Male
  Weight: 90 kg

DRUGS (3)
  1. DURAGESIC-100 [Suspect]
     Indication: PAIN
     Dosage: 1 DF
     Route: 062
     Dates: start: 20110101
  2. DICLOFENAC SODIUM [Suspect]
     Indication: PRODUCT USED FOR UNKNOWN INDICATION
     Route: 065
     Dates: start: 20101201, end: 20110215
  3. OXYCONTIN [Suspect]
     Indication: PAIN
     Route: 065
     Dates: start: 20101201

REACTIONS (2)
  - CERUMEN IMPACTION [None]
  - INNER EAR DISORDER [None]
